FAERS Safety Report 4549156-0 (Version None)
Quarter: 2005Q1

REPORT INFORMATION
  Report Type: 
  Country: None (occurrence: None)
  Receive Date: 20050107
  Receipt Date: 20050107
  Transmission Date: 20050727
  Serious: Yes (Other)
  Sender: FDA-Public Use
  Company Number: None

PATIENT
  Sex: Male
  Weight: 105.2345 kg

DRUGS (7)
  1. IRESSA [Suspect]
     Indication: METASTATIC RENAL CELL CARCINOMA
     Dosage: 250 MG QD ORAL
     Route: 048
     Dates: start: 20031111, end: 20041121
  2. PEGYLATED INTERFERON [Suspect]
     Indication: METASTATIC RENAL CELL CARCINOMA
     Dosage: 6.0 MCG/KG/WK SUBCUTANEOU
     Route: 058
     Dates: start: 20041111, end: 20041117
  3. COUMADIN [Concomitant]
  4. LISINOPRIL [Concomitant]
  5. MS CONTIN [Concomitant]
  6. PRILOSEK [Concomitant]
  7. LOVENOX [Concomitant]

REACTIONS (6)
  - HAEMATOTOXICITY [None]
  - HYPONATRAEMIA [None]
  - LEUKOPENIA [None]
  - NAUSEA [None]
  - NEUTROPENIA [None]
  - PULMONARY EMBOLISM [None]
